FAERS Safety Report 8445896-1 (Version None)
Quarter: 2012Q2

REPORT INFORMATION
  Report Type: 
  Country: None (occurrence: None)
  Receive Date: 20120323
  Receipt Date: 20111004
  Transmission Date: 20120825
  Serious: Yes (Hospitalization, Other)
  Sender: FDA-Public Use
  Company Number: 163-21880-11090894

PATIENT
  Age: 60 Year
  Sex: Female

DRUGS (3)
  1. DIABETES MEDS (ANTI-DIABETICS) [Concomitant]
  2. REVLIMID [Suspect]
     Indication: MULTIPLE MYELOMA
     Dosage: 15 MG, QD, X 21 DAYS, PO
     Route: 048
     Dates: start: 20110910
  3. HTN MEDS (ANTIHYPERTENSIVES) [Concomitant]

REACTIONS (3)
  - PARAESTHESIA [None]
  - PANCYTOPENIA [None]
  - CELLULITIS [None]
